FAERS Safety Report 6103585-2 (Version None)
Quarter: 2009Q1

REPORT INFORMATION
  Report Type: 
  Country: None (occurrence: None)
  Receive Date: 20090305
  Receipt Date: 20090202
  Transmission Date: 20090719
  Serious: No
  Sender: FDA-Public Use
  Company Number: US-BAYER-200810611BCC

PATIENT
  Age: 60 Year
  Sex: Male
  Weight: 113 kg

DRUGS (7)
  1. ALEVE (CAPLET) [Suspect]
     Indication: ARTHRALGIA
     Route: 048
     Dates: end: 20080206
  2. ASPIRIN [Suspect]
     Indication: DRUG USE FOR UNKNOWN INDICATION
     Route: 048
  3. TOPROL-XL [Concomitant]
  4. CITALOPRAM [Concomitant]
  5. LASIX [Concomitant]
  6. FLOMAX [Concomitant]
  7. ADVAIR HFA [Concomitant]

REACTIONS (1)
  - CONTUSION [None]
